FAERS Safety Report 8203161-1 (Version None)
Quarter: 2012Q1

REPORT INFORMATION
  Report Type: 
  Country: None (occurrence: None)
  Receive Date: 20120312
  Receipt Date: 20120305
  Transmission Date: 20120608
  Serious: Yes (Other)
  Sender: FDA-Public Use
  Company Number: CHPA2012US004222

PATIENT
  Age: 55 Year
  Sex: Female

DRUGS (1)
  1. EXCEDRIN (MIGRAINE) [Suspect]
     Indication: MIGRAINE
     Dosage: 2 TO 6 DF, A DAY
     Route: 048
     Dates: start: 20040101

REACTIONS (2)
  - OVERDOSE [None]
  - TRANSIENT ISCHAEMIC ATTACK [None]
